FAERS Safety Report 7285758-9 (Version None)
Quarter: 2011Q1

REPORT INFORMATION
  Report Type: 
  Country: None (occurrence: None)
  Receive Date: 20110125
  Receipt Date: 20110110
  Transmission Date: 20110831
  Serious: Yes (Death)
  Sender: FDA-Public Use
  Company Number: 025450

PATIENT
  Age: 32 Year
  Sex: Male

DRUGS (5)
  1. ALPRAZOLAM [Suspect]
     Dosage: ORAL
     Route: 048
  2. CYCLOBENZAPRINE [Suspect]
     Dosage: ORAL
     Route: 048
  3. DESOGESTREL AND ETHINYL ESTRADIOL [Suspect]
     Dosage: ORAL
     Route: 048
  4. ESCITALOPRAM [Suspect]
     Dosage: ORAL
     Route: 048
  5. ZOLPIDEM [Suspect]
     Dosage: ORAL
     Route: 048

REACTIONS (1)
  - DRUG ABUSE [None]
